FAERS Safety Report 4732718-5 (Version None)
Quarter: 2005Q3

REPORT INFORMATION
  Report Type: 
  Country: None (occurrence: None)
  Receive Date: 20050803
  Receipt Date: 20050727
  Transmission Date: 20060218
  Serious: Yes (Hospitalization)
  Sender: FDA-Public Use
  Company Number: 2005CG01313

PATIENT
  Age: 75 Year
  Sex: Male
  Weight: 92 kg

DRUGS (2)
  1. OMEPRAZOLE [Suspect]
     Indication: ANASTOMOTIC ULCER
     Route: 048
  2. IMUREL [Suspect]
     Indication: PULMONARY FIBROSIS
     Route: 048
     Dates: start: 20041115, end: 20050128

REACTIONS (13)
  - ALANINE AMINOTRANSFERASE INCREASED [None]
  - ASCITES [None]
  - ASPARTATE AMINOTRANSFERASE INCREASED [None]
  - BLOOD CREATININE INCREASED [None]
  - BLOOD UREA INCREASED [None]
  - GENERAL PHYSICAL HEALTH DETERIORATION [None]
  - JAUNDICE [None]
  - OEDEMA [None]
  - SEPSIS [None]
  - SEPTIC SHOCK [None]
  - SPLENOMEGALY [None]
  - TACHYCARDIA [None]
  - TACHYPNOEA [None]
